FAERS Safety Report 7653722-3 (Version None)
Quarter: 2011Q3

REPORT INFORMATION
  Report Type: 
  Country: None (occurrence: None)
  Receive Date: 20110801
  Receipt Date: 20110801
  Transmission Date: 20111222
  Serious: No
  Sender: FDA-Public Use
  Company Number: None

PATIENT
  Sex: Female
  Weight: 128.6 kg

DRUGS (1)
  1. STELARA [Suspect]
     Indication: ARTHRITIS
     Dosage: 90 MG Q3MONTHS SQ
     Route: 058
     Dates: start: 20110723

REACTIONS (1)
  - PSORIASIS [None]
